FAERS Safety Report 6928870-3 (Version None)
Quarter: 2010Q3

REPORT INFORMATION
  Report Type: 
  Country: None (occurrence: None)
  Receive Date: 20100817
  Receipt Date: 20100805
  Transmission Date: 20110219
  Serious: Yes (Hospitalization)
  Sender: FDA-Public Use
  Company Number: KR-ABBOTT-10P-090-0662064-00

PATIENT
  Sex: Male

DRUGS (9)
  1. KALETRA [Suspect]
     Indication: PRODUCT USED FOR UNKNOWN INDICATION
     Dates: start: 20091103
  2. 3TC/AZT [Concomitant]
     Indication: ANTIRETROVIRAL THERAPY
     Dosage: 900 MG, DAILY
     Dates: start: 20091103
  3. COMBIVIR [Concomitant]
     Indication: ANTIRETROVIRAL THERAPY
     Dosage: 900 MG, DAILY
     Route: 048
     Dates: start: 20091103
  4. STILLEN [Concomitant]
     Indication: GASTRITIS
     Dosage: 60 MG, DAILY
     Route: 048
     Dates: start: 20091103, end: 20091116
  5. AMARYL [Concomitant]
     Indication: DIABETES MELLITUS
     Dosage: 4 MG, DAILY
     Route: 048
  6. GLUPA [Concomitant]
     Indication: DIABETES MELLITUS
     Route: 048
  7. C-ALL [Concomitant]
     Indication: VITAMIN SUPPLEMENTATION
     Route: 048
     Dates: start: 20100622, end: 20100719
  8. HUMALOG [Concomitant]
     Indication: HYPERGLYCAEMIA
     Dosage: 100 IU/ML, 10ML, 28 IU DAILY
     Route: 058
     Dates: start: 20100805, end: 20100805
  9. TS TAB [Concomitant]
     Indication: ANTIFUNGAL PROPHYLAXIS
     Route: 048
     Dates: start: 20091103

REACTIONS (6)
  - DEHYDRATION [None]
  - ELECTROLYTE IMBALANCE [None]
  - HERPES SIMPLEX [None]
  - INSOMNIA [None]
  - ORAL CANDIDIASIS [None]
  - RENAL FAILURE ACUTE [None]
